FAERS Safety Report 24858335 (Version 2)
Quarter: 2025Q1

REPORT INFORMATION
  Report Type: Report from Study
  Country: US (occurrence: US)
  Receive Date: 20250117
  Receipt Date: 20250211
  Transmission Date: 20250408
  Serious: Yes (Hospitalization, Other)
  Sender: GILEAD
  Company Number: US-GILEAD-2025-0699971

PATIENT
  Age: 64 Year
  Sex: Male

DRUGS (1)
  1. AZTREONAM LYSINE [Suspect]
     Active Substance: AZTREONAM LYSINE
     Indication: Pneumonitis aspiration
     Dosage: INHALE 1 VIAL VIA ALTERA NEBULIZER THREE TIMES DAILY 28 DAYS ON 28 DAYS OFF
     Route: 055
     Dates: start: 20240925

REACTIONS (2)
  - Staphylococcal infection [Unknown]
  - Product use in unapproved indication [Not Recovered/Not Resolved]
